FAERS Safety Report 4824288-8 (Version None)
Quarter: 2005Q4

REPORT INFORMATION
  Report Type: 
  Country: None (occurrence: None)
  Receive Date: 20051109
  Receipt Date: 20050707
  Transmission Date: 20060501
  Serious: Yes (Hospitalization)
  Sender: FDA-Public Use
  Company Number: US-MERCK-0507USA01361

PATIENT
  Age: 66 Year
  Sex: Male
  Weight: 86 kg

DRUGS (14)
  1. ZOCOR [Concomitant]
     Route: 065
     Dates: start: 20000101
  2. ACIPHEX [Concomitant]
     Route: 065
  3. FOLIC ACID [Concomitant]
     Route: 065
  4. PROZAC [Concomitant]
     Route: 065
  5. TIAZAC [Concomitant]
     Route: 065
  6. VITAMINS (UNSPECIFIED) [Concomitant]
     Route: 065
  7. VIOXX [Suspect]
     Indication: OSTEOARTHRITIS
     Route: 048
     Dates: start: 20010101, end: 20040101
  8. AVAPRO [Concomitant]
     Route: 065
     Dates: start: 20010601
  9. HYTRIN [Concomitant]
     Route: 065
     Dates: start: 20020101
  10. HYDRODIURIL [Concomitant]
     Route: 065
     Dates: start: 20010101
  11. LASIX [Concomitant]
     Route: 065
     Dates: start: 20010101
  12. ASPIRIN [Concomitant]
     Route: 065
     Dates: start: 19900101
  13. LIPITOR [Concomitant]
     Route: 065
     Dates: start: 20000101
  14. LIPITOR [Concomitant]
     Route: 065
     Dates: start: 20000101

REACTIONS (6)
  - CHRONIC OBSTRUCTIVE PULMONARY DISEASE [None]
  - DYSPNOEA [None]
  - HYPOXIA [None]
  - INJURY [None]
  - MYOCARDIAL INFARCTION [None]
  - SLEEP APNOEA SYNDROME [None]
